FAERS Safety Report 7493278-1 (Version None)
Quarter: 2011Q2

REPORT INFORMATION
  Report Type: 
  Country: None (occurrence: None)
  Receive Date: 20110520
  Receipt Date: 20110421
  Transmission Date: 20111010
  Serious: Yes (Other)
  Sender: FDA-Public Use
  Company Number: US-BAYER-201017562NA

PATIENT
  Age: 36 Year
  Sex: Female
  Weight: 90.703 kg

DRUGS (13)
  1. YAZ [Suspect]
     Indication: CONTRACEPTION
     Dosage: UNK
     Route: 048
  2. WELLBUTRIN XL [Concomitant]
     Dosage: 300 MG, UNK
  3. GABAPENTIN [Concomitant]
     Dosage: 300 MG, UNK
  4. BUDEPRION [Concomitant]
     Dosage: 300 MG, UNK
  5. ALBUTEROL INHALER [Concomitant]
  6. DROSPIRENONE AND ETHINYL ESTRADIOL [Suspect]
     Indication: CONTRACEPTION
  7. INDOMETHACIN [Concomitant]
     Dosage: 25 MG, UNK
  8. YASMIN [Suspect]
     Indication: CONTRACEPTION
     Dosage: UNK UNK, UNK
     Route: 048
     Dates: start: 20030101, end: 20081001
  9. LORTAB [Concomitant]
  10. SULFAMETHOXAZOLE AND TRIMETHOPRIM [Concomitant]
  11. ADVAIR DISKUS 100/50 [Concomitant]
  12. TYLENOL W/ CODEINE [Concomitant]
  13. TERCONAZOLE [Concomitant]
     Dosage: 80 MG, UNK
     Route: 067

REACTIONS (4)
  - ORGAN FAILURE [None]
  - CHOLELITHIASIS [None]
  - CHOLECYSTITIS CHRONIC [None]
  - GALLBLADDER NON-FUNCTIONING [None]
